FAERS Safety Report 5608042-5 (Version None)
Quarter: 2008Q1

REPORT INFORMATION
  Report Type: 
  Country: None (occurrence: None)
  Receive Date: 20080128
  Receipt Date: 20080128
  Transmission Date: 20080703
  Serious: No
  Sender: FDA-Public Use
  Company Number: None

PATIENT
  Age: 35 Year
  Sex: Female

DRUGS (1)
  1. CIPROFLOXACIN [Suspect]
     Indication: CONJUNCTIVITIS
     Dosage: EVERY 6 HOURS OPHTHALMIC
     Route: 047

REACTIONS (4)
  - EYE SWELLING [None]
  - HYPERSENSITIVITY [None]
  - INSTILLATION SITE ERYTHEMA [None]
  - INSTILLATION SITE IRRITATION [None]
